FAERS Safety Report 26025023 (Version 1)
Quarter: 2025Q4

REPORT INFORMATION
  Report Type: Spontaneous
  Country: EG (occurrence: EG)
  Receive Date: 20251111
  Receipt Date: 20251111
  Transmission Date: 20260118
  Serious: Yes (Life-Threatening, Other)
  Sender: HIKMA
  Company Number: EG-HIKMA PHARMACEUTICALS-EG-H14001-25-11930

PATIENT
  Age: 61 Year
  Sex: Female
  Weight: 65 kg

DRUGS (2)
  1. CARBOPLATIN [Suspect]
     Active Substance: CARBOPLATIN
     Indication: Lung neoplasm malignant
     Dosage: 550 MILLIGRAM, 450 MG (250047) AND 150 MG (250031), DISSOLVED IN 500 ML NORMAL SALINE OVER 2 HOURS
     Route: 042
     Dates: start: 20250803
  2. GEMCITABINE HYDROCHLORIDE [Concomitant]
     Active Substance: GEMCITABINE HYDROCHLORIDE
     Indication: Product used for unknown indication
     Dosage: 1700 MILLIGRAM (DISSOLVED IN 500 ML NORMAL SALINE FOR CONTINUOUS INTRAVENOUS INFUSION OVER 1 HOUR)
     Route: 042

REACTIONS (4)
  - Loss of consciousness [Recovered/Resolved]
  - Dizziness [Unknown]
  - Hypersensitivity [Recovered/Resolved]
  - Anaphylactic reaction [Recovered/Resolved]
